FAERS Safety Report 25573901 (Version 1)
Quarter: 2025Q3

REPORT INFORMATION
  Report Type: Spontaneous
  Country: US (occurrence: US)
  Receive Date: 20250717
  Receipt Date: 20250717
  Transmission Date: 20251021
  Serious: No
  Sender: MYLAN
  Company Number: US-MYLANLABS-2025M1057167

PATIENT
  Sex: Male
  Weight: 54.52 kg

DRUGS (2)
  1. FENTANYL TRANSDERMAL SYSTEM [Suspect]
     Active Substance: FENTANYL
     Indication: Multiple sclerosis
     Dosage: 50 MICROGRAM, QH (EVERY 72 HOURS)
  2. HYDROCODONE [Concomitant]
     Active Substance: HYDROCODONE

REACTIONS (6)
  - Drug screen negative [Unknown]
  - Drug tolerance [Unknown]
  - Wrong technique in product usage process [Unknown]
  - Lack of application site rotation [Unknown]
  - Therapeutic product effect decreased [Unknown]
  - Off label use [Unknown]

NARRATIVE: CASE EVENT DATE: 20250101
